FAERS Safety Report 12668830 (Version 4)
Quarter: 2016Q3

REPORT INFORMATION
  Report Type: Spontaneous
  Country: SA (occurrence: SA)
  Receive Date: 20160819
  Receipt Date: 20160831
  Transmission Date: 20161109
  Serious: Yes (Death)
  Sender: FDA-Public Use
  Company Number: SA-WEST-WARD PHARMACEUTICALS CORP.-SA-H14001-16-01618

PATIENT
  Age: 33 Year
  Sex: Female
  Weight: 130 kg

DRUGS (2)
  1. CEFAXONE [Suspect]
     Active Substance: CEFTRIAXONE
     Indication: UPPER RESPIRATORY TRACT INFECTION
     Route: 040
  2. XEFO [Suspect]
     Active Substance: LORNOXICAM
     Indication: PRODUCT USED FOR UNKNOWN INDICATION
     Route: 040

REACTIONS (4)
  - Coma [Fatal]
  - Cardiac arrest [Fatal]
  - Hypotension [Fatal]
  - Neurogenic shock [Fatal]

NARRATIVE: CASE EVENT DATE: 201603
